FAERS Safety Report 7041166-7 (Version None)
Quarter: 2010Q4

REPORT INFORMATION
  Report Type: 
  Country: None (occurrence: None)
  Receive Date: 20101013
  Receipt Date: 20101001
  Transmission Date: 20110411
  Serious: Yes (Hospitalization)
  Sender: FDA-Public Use
  Company Number: CA-JNJFOC-20101001340

PATIENT
  Sex: Female
  Weight: 64 kg

DRUGS (11)
  1. REMICADE [Suspect]
     Indication: RHEUMATOID ARTHRITIS
     Route: 042
  2. ASAPHEN [Concomitant]
  3. NORVASC [Concomitant]
  4. APO-FOLIC [Concomitant]
  5. METHOTREXATE [Concomitant]
  6. ACETAMINOPHEN [Concomitant]
  7. DILAUDID [Concomitant]
  8. PLAQUENIL [Concomitant]
  9. FOSAVANCE [Concomitant]
  10. DIOVAN [Concomitant]
  11. ZOCOR [Concomitant]

REACTIONS (3)
  - ABASIA [None]
  - ARTHRALGIA [None]
  - BLOOD POTASSIUM DECREASED [None]
